FAERS Safety Report 19117038 (Version 3)
Quarter: 2022Q2

REPORT INFORMATION
  Report Type: Spontaneous
  Country: US (occurrence: US)
  Receive Date: 20210409
  Receipt Date: 20220526
  Transmission Date: 20220721
  Serious: No
  Sender: FDA-Public Use
  Company Number: US-PFIZER INC-2021268475

PATIENT
  Age: 67 Year
  Sex: Female

DRUGS (3)
  1. XELJANZ XR [Suspect]
     Active Substance: TOFACITINIB CITRATE
     Indication: Rheumatoid arthritis
     Dosage: 11 MG, DAILY
     Route: 048
     Dates: start: 202011
  2. XELJANZ XR [Suspect]
     Active Substance: TOFACITINIB CITRATE
     Indication: Psoriatic arthropathy
  3. PREDNISONE [Concomitant]
     Active Substance: PREDNISONE
     Indication: Arthritis
     Dosage: UNK
     Dates: start: 2021

REACTIONS (5)
  - Discouragement [Unknown]
  - Depressed mood [Unknown]
  - Personality disorder [Unknown]
  - Pain [Unknown]
  - Product dose omission in error [Unknown]

NARRATIVE: CASE EVENT DATE: 20201101
